FAERS Safety Report 18694106 (Version 1)
Quarter: 2020Q4

REPORT INFORMATION
  Report Type: Spontaneous
  Country: US (occurrence: US)
  Receive Date: 20201231
  Receipt Date: 20201231
  Transmission Date: 20210114
  Serious: Yes (Hospitalization)
  Sender: FDA-Public Use
  Company Number: None

PATIENT
  Sex: Female

DRUGS (6)
  1. HYDROXYCHLOR [Concomitant]
     Active Substance: HYDROXYCHLOROQUINE
  2. PREDNISONE. [Concomitant]
     Active Substance: PREDNISONE
  3. BENLYSTA [Suspect]
     Active Substance: BELIMUMAB
     Indication: SYSTEMIC LUPUS ERYTHEMATOSUS
     Route: 058
     Dates: start: 20201030
  4. FUROSEMIDE. [Concomitant]
     Active Substance: FUROSEMIDE
  5. VALSARTAN. [Concomitant]
     Active Substance: VALSARTAN
  6. METOPROL TAR [Concomitant]

REACTIONS (1)
  - Hospitalisation [None]
